FAERS Safety Report 19253884 (Version 1)
Quarter: 2021Q2

REPORT INFORMATION
  Report Type: Spontaneous
  Country: US (occurrence: US)
  Receive Date: 20210513
  Receipt Date: 20210513
  Transmission Date: 20210717
  Serious: Yes (Life-Threatening)
  Sender: FDA-Public Use
  Company Number: None

PATIENT
  Age: 29 Year
  Sex: Male
  Weight: 58.5 kg

DRUGS (1)
  1. EMTRICITABINE/TENOFOVIR DISOPROXIL FUMARATE [Suspect]
     Active Substance: EMTRICITABINE\TENOFOVIR DISOPROXIL FUMARATE
     Indication: PRODUCT USED FOR UNKNOWN INDICATION
     Route: 048
     Dates: start: 20210416, end: 20210417

REACTIONS (8)
  - Throat irritation [None]
  - Tongue discomfort [None]
  - Eye irritation [None]
  - Skin burning sensation [None]
  - Pruritus [None]
  - Eye swelling [None]
  - Therapy cessation [None]
  - Eye pain [None]

NARRATIVE: CASE EVENT DATE: 20210416
